FAERS Safety Report 22272320 (Version 1)
Quarter: 2023Q2

REPORT INFORMATION
  Report Type: Spontaneous
  Country: US (occurrence: US)
  Receive Date: 20230502
  Receipt Date: 20230502
  Transmission Date: 20230722
  Serious: Yes (Other)
  Sender: FDA-Public Use
  Company Number: US-NOVOPROD-1057719

PATIENT
  Age: 46 Year
  Sex: Male
  Weight: 117.91 kg

DRUGS (11)
  1. OZEMPIC [Concomitant]
     Active Substance: SEMAGLUTIDE
     Indication: Diabetes mellitus
     Dosage: UNK
     Route: 058
  2. TRESIBA [Suspect]
     Active Substance: INSULIN DEGLUDEC
     Indication: Diabetes mellitus
     Dosage: UNK
     Route: 058
  3. KORLYM [Suspect]
     Active Substance: MIFEPRISTONE
     Dosage: 600 MG, QD
     Route: 048
     Dates: start: 20230209
  4. KORLYM [Suspect]
     Active Substance: MIFEPRISTONE
     Indication: Cushing^s syndrome
     Dosage: 300 MG, QD
     Route: 048
     Dates: start: 20221216, end: 20230208
  5. NORCO [Suspect]
     Active Substance: ACETAMINOPHEN\HYDROCODONE BITARTRATE
     Indication: Product used for unknown indication
     Dosage: UNK
     Route: 048
     Dates: start: 20230314, end: 20230315
  6. JARDIANCE [Suspect]
     Active Substance: EMPAGLIFLOZIN
     Indication: Diabetes mellitus
     Dosage: 25 MG
     Route: 048
     Dates: end: 202212
  7. BERBERINE COMPLEX [Concomitant]
     Indication: Diabetes mellitus
     Dosage: UNK
     Route: 048
  8. HERBALS\HOMEOPATHICS\GOLDENSEAL [Concomitant]
     Active Substance: HERBALS\HOMEOPATHICS\GOLDENSEAL
     Indication: Product used for unknown indication
     Dosage: UNK
  9. LOSARTAN + HIDROCLOROTIAZIDA ACTAVIS [Concomitant]
     Indication: Hypertension
     Dosage: UNK
     Route: 048
  10. METOPROLOL [Concomitant]
     Active Substance: METOPROLOL
     Indication: Hypertension
     Dosage: UNK
     Route: 048
  11. PRAVASTATIN [Concomitant]
     Active Substance: PRAVASTATIN
     Indication: Hyperlipidaemia
     Dosage: UNK
     Route: 048

REACTIONS (17)
  - Tooth fracture [Unknown]
  - Blood glucose increased [Recovered/Resolved]
  - Fungal infection [Unknown]
  - Feeling abnormal [Unknown]
  - Palpitations [Unknown]
  - Influenza [Unknown]
  - Sinus congestion [Unknown]
  - Hypersensitivity [Unknown]
  - Blood pressure increased [Unknown]
  - Somnolence [Unknown]
  - Peripheral swelling [Unknown]
  - Fatigue [Unknown]
  - Dizziness [Unknown]
  - Nausea [Unknown]
  - Vomiting [Unknown]
  - Headache [Unknown]
  - Hypoglycaemia [Unknown]

NARRATIVE: CASE EVENT DATE: 20221209
